FAERS Safety Report 20075123 (Version 1)
Quarter: 2021Q4

REPORT INFORMATION
  Report Type: Spontaneous
  Country: US (occurrence: None)
  Receive Date: 20211115
  Receipt Date: 20211115
  Transmission Date: 20220303
  Serious: Yes (Hospitalization)
  Sender: FDA-Public Use
  Company Number: None

PATIENT
  Age: 76 Year
  Sex: Male

DRUGS (1)
  1. MELOXICAM [Suspect]
     Active Substance: MELOXICAM
     Indication: Pain
     Dosage: FREQUENCY : DAILY;?
     Route: 048
     Dates: start: 20200629, end: 20210903

REACTIONS (4)
  - Gastrointestinal haemorrhage [None]
  - Gastritis erosive [None]
  - Duodenitis [None]
  - Gastric disorder [None]

NARRATIVE: CASE EVENT DATE: 20210903
